FAERS Safety Report 6649978-6 (Version None)
Quarter: 2010Q1

REPORT INFORMATION
  Report Type: 
  Country: None (occurrence: None)
  Receive Date: 20100324
  Receipt Date: 20100324
  Transmission Date: 20100710
  Serious: Yes (Other)
  Sender: FDA-Public Use
  Company Number: None

PATIENT
  Sex: Female
  Weight: 68.0396 kg

DRUGS (2)
  1. PERCOCET [Suspect]
     Dosage: 5/325
     Dates: start: 20090702
  2. OXYCONTIN [Suspect]
     Dosage: 20MG
     Dates: start: 20040420

REACTIONS (2)
  - DRUG EFFECT DECREASED [None]
  - PRODUCT SUBSTITUTION ISSUE [None]
